FAERS Safety Report 14592983 (Version 1)
Quarter: 2018Q1

REPORT INFORMATION
  Report Type: Spontaneous
  Country: US (occurrence: US)
  Receive Date: 20180302
  Receipt Date: 20180302
  Transmission Date: 20180509
  Serious: Yes (Other)
  Sender: FDA-Public Use
  Company Number: US-SA-2018SA058677

PATIENT

DRUGS (6)
  1. SOLOSTAR [Suspect]
     Active Substance: DEVICE
  2. IMURAN [Concomitant]
     Active Substance: AZATHIOPRINE
  3. TOUJEO [Suspect]
     Active Substance: INSULIN GLARGINE
     Dosage: DOSE:28 UNIT(S)
     Route: 051
  4. PREDNISONE. [Suspect]
     Active Substance: PREDNISONE
     Indication: DERMATOMYOSITIS
     Route: 065
     Dates: start: 201712
  5. BACTRIM [Concomitant]
     Active Substance: SULFAMETHOXAZOLE\TRIMETHOPRIM
  6. HUMALOG [Concomitant]
     Active Substance: INSULIN LISPRO

REACTIONS (4)
  - Coeliac disease [Unknown]
  - Glycosylated haemoglobin increased [Unknown]
  - Dermatomyositis [Unknown]
  - Blood glucose increased [Unknown]
